FAERS Safety Report 7349159-7 (Version None)
Quarter: 2011Q1

REPORT INFORMATION
  Report Type: 
  Country: None (occurrence: None)
  Receive Date: 20110303
  Receipt Date: 20090915
  Transmission Date: 20110831
  Serious: Yes (Other)
  Sender: FDA-Public Use
  Company Number: 027888

PATIENT
  Sex: Male

DRUGS (4)
  1. TAVOR [Concomitant]
  2. LACOSAMIDE [Suspect]
     Indication: CONVULSION
     Dosage: 50 MG, 100 MG, 1-1-3
  3. ZONEGRAN [Concomitant]
  4. LAMOTRIGINE [Concomitant]

REACTIONS (10)
  - GRAND MAL CONVULSION [None]
  - MYDRIASIS [None]
  - FATIGUE [None]
  - POSTICTAL STATE [None]
  - CONFUSIONAL STATE [None]
  - COMPLEX PARTIAL SEIZURES [None]
  - DYSKINESIA [None]
  - SLEEP DISORDER [None]
  - CONVULSION [None]
  - FUMBLING [None]
